FAERS Safety Report 6295370-6 (Version None)
Quarter: 2009Q3

REPORT INFORMATION
  Report Type: 
  Country: None (occurrence: None)
  Receive Date: 20090803
  Receipt Date: 20090723
  Transmission Date: 20100115
  Serious: Yes (Other)
  Sender: FDA-Public Use
  Company Number: GB-SANOFI-SYNTHELABO-A01200907764

PATIENT
  Age: 88 Year
  Sex: Female

DRUGS (1)
  1. PLAVIX [Suspect]
     Indication: THROMBOSIS PROPHYLAXIS
     Dosage: UNK
     Route: 048
     Dates: start: 20080101, end: 20090720

REACTIONS (7)
  - DECREASED APPETITE [None]
  - DRUG INEFFECTIVE [None]
  - HYPOTENSION [None]
  - ORAL PAIN [None]
  - PERIPHERAL VASCULAR DISORDER [None]
  - VOMITING [None]
  - WEIGHT DECREASED [None]
